FAERS Safety Report 5799918-7 (Version None)
Quarter: 2008Q2

REPORT INFORMATION
  Report Type: 
  Country: None (occurrence: None)
  Receive Date: 20080626
  Receipt Date: 20070525
  Transmission Date: 20081010
  Serious: Yes (Other)
  Sender: FDA-Public Use
  Company Number: 499684

PATIENT
  Age: 45 Year
  Sex: Female

DRUGS (3)
  1. XELODA [Suspect]
     Indication: DRUG USE FOR UNKNOWN INDICATION
     Dates: start: 20070101
  2. TYKERB [Suspect]
     Indication: BREAST CANCER
     Dosage: 1250 MG DAILY ORAL
     Route: 048
     Dates: start: 20070101
  3. CONCOMITANT DRUG (GENERIC UNKNOWN) [Concomitant]

REACTIONS (1)
  - NEUTROPENIA [None]
